FAERS Safety Report 24111844 (Version 1)
Quarter: 2024Q3

REPORT INFORMATION
  Report Type: Report from Study
  Country: US (occurrence: US)
  Receive Date: 20240718
  Receipt Date: 20240718
  Transmission Date: 20241017
  Serious: Yes (Hospitalization)
  Sender: JOHNSON AND JOHNSON
  Company Number: US-JNJFOC-20240625044

PATIENT
  Sex: Male

DRUGS (1)
  1. TALVEY [Suspect]
     Active Substance: TALQUETAMAB-TGVS
     Indication: Plasma cell myeloma
     Route: 058
     Dates: start: 20240511

REACTIONS (5)
  - Fatigue [Recovering/Resolving]
  - Ageusia [Unknown]
  - Decreased appetite [Unknown]
  - Weight increased [Unknown]
  - Dry mouth [Unknown]
